FAERS Safety Report 4875002-1 (Version None)
Quarter: 2006Q1

REPORT INFORMATION
  Report Type: 
  Country: None (occurrence: None)
  Receive Date: 20060104
  Receipt Date: 20051222
  Transmission Date: 20060701
  Serious: Yes (Hospitalization)
  Sender: FDA-Public Use
  Company Number: 2005160390

PATIENT
  Age: 73 Year
  Sex: Female

DRUGS (6)
  1. AZULFIDINE EN-TABS [Suspect]
     Indication: RHEUMATOID ARTHRITIS
     Dosage: 1000 MG (500 MG, 2 IN 1 D), ORAL
     Route: 048
     Dates: start: 20040518, end: 20051014
  2. NORVASC [Concomitant]
  3. PREDNISOLONE [Concomitant]
  4. RISEDRONATE SODIUM HYDRATE (RISEDRONATE SODIUM) [Concomitant]
  5. MUCOSTA (REBAMIPIDE) [Concomitant]
  6. FAMOTIDINE [Concomitant]

REACTIONS (1)
  - DIZZINESS [None]
